FAERS Safety Report 6548024-2 (Version None)
Quarter: 2010Q1

REPORT INFORMATION
  Report Type: 
  Country: None (occurrence: None)
  Receive Date: 20100124
  Receipt Date: 20091217
  Transmission Date: 20100710
  Serious: No
  Sender: FDA-Public Use
  Company Number: US-ALEXION-A200901087

PATIENT

DRUGS (3)
  1. SOLIRIS [Suspect]
     Indication: PAROXYSMAL NOCTURNAL HAEMOGLOBINURIA
     Dosage: 600 MG, UNK
     Dates: start: 20070401, end: 20070401
  2. SOLIRIS [Suspect]
     Dosage: 900 MG, UNK
     Dates: start: 20071212
  3. EXJADE [Suspect]

REACTIONS (3)
  - BACK INJURY [None]
  - BLOOD IRON INCREASED [None]
  - MALAISE [None]
